FAERS Safety Report 6570275-1 (Version None)
Quarter: 2010Q1

REPORT INFORMATION
  Report Type: 
  Country: None (occurrence: None)
  Receive Date: 20100202
  Receipt Date: 20100202
  Transmission Date: 20100710
  Serious: Yes (Hospitalization)
  Sender: FDA-Public Use
  Company Number: None

PATIENT

DRUGS (1)
  1. METADATE CD [Suspect]
     Dates: start: 20090301, end: 20090314

REACTIONS (2)
  - DRUG HYPERSENSITIVITY [None]
  - HALLUCINATION [None]
